FAERS Safety Report 8137449-X (Version None)
Quarter: 2012Q1

REPORT INFORMATION
  Report Type: 
  Country: None (occurrence: None)
  Receive Date: 20120210
  Receipt Date: 20120201
  Transmission Date: 20120608
  Serious: Yes (Disabling)
  Sender: FDA-Public Use
  Company Number: DSA_48871_2012

PATIENT
  Sex: Female

DRUGS (1)
  1. DILTIAZEM HCL [Suspect]
     Indication: ATRIAL FIBRILLATION
     Dosage: (180 MG QD ORAL), (120 MG QD)
     Route: 048
     Dates: start: 20111101, end: 20120105

REACTIONS (9)
  - ABNORMAL BEHAVIOUR [None]
  - FATIGUE [None]
  - MOOD SWINGS [None]
  - NAUSEA [None]
  - LETHARGY [None]
  - LACRIMATION INCREASED [None]
  - INSOMNIA [None]
  - DIZZINESS [None]
  - BACK PAIN [None]
